FAERS Safety Report 23154417 (Version 1)
Quarter: 2023Q4

REPORT INFORMATION
  Report Type: Spontaneous
  Country: US (occurrence: None)
  Receive Date: 20231107
  Receipt Date: 20231107
  Transmission Date: 20240109
  Serious: Yes (unspecified)
  Sender: FDA-Public Use
  Company Number: None

PATIENT
  Age: 57 Year
  Sex: Female

DRUGS (1)
  1. HUMIRA [Suspect]
     Active Substance: ADALIMUMAB
     Dosage: OTHER FREQUENCY : EVERY OTHER;?

REACTIONS (9)
  - Thyroid cancer [None]
  - Tongue neoplasm malignant stage unspecified [None]
  - Carpal tunnel syndrome [None]
  - Fall [None]
  - Ligament sprain [None]
  - Vomiting [None]
  - Dehydration [None]
  - Loss of therapeutic response [None]
  - Drug ineffective [None]
